FAERS Safety Report 6670274-5 (Version None)
Quarter: 2010Q2

REPORT INFORMATION
  Report Type: 
  Country: None (occurrence: None)
  Receive Date: 20100405
  Receipt Date: 20100322
  Transmission Date: 20101027
  Serious: Yes (Death)
  Sender: FDA-Public Use
  Company Number: 009123

PATIENT
  Sex: Male

DRUGS (2)
  1. LEVETIRACETAM [Suspect]
  2. ASASANTIN /00042901/ (ASASANTIN) [Suspect]

REACTIONS (5)
  - ASPHYXIA [None]
  - COMPLETED SUICIDE [None]
  - STRESS [None]
  - THROMBOSIS [None]
  - VICTIM OF HOMICIDE [None]
